FAERS Safety Report 11929393 (Version 1)
Quarter: 2016Q1

REPORT INFORMATION
  Report Type: Spontaneous
  Country: US (occurrence: None)
  Receive Date: 20160119
  Receipt Date: 20160119
  Transmission Date: 20160526
  Serious: No
  Sender: FDA-Public Use
  Company Number: None

PATIENT
  Age: 41 Year
  Sex: Female
  Weight: 89.36 kg

DRUGS (4)
  1. JANUMET [Concomitant]
     Active Substance: METFORMIN HYDROCHLORIDE\SITAGLIPTIN PHOSPHATE
  2. FLAGYL [Concomitant]
     Active Substance: METRONIDAZOLE\METRONIDAZOLE HYDROCHLORIDE
  3. PROGESTERONE 200MG CAPSULE AKORN [Suspect]
     Active Substance: PROGESTERONE
     Indication: UTERINE DISORDER
     Dosage: 1 PILL  ONCE DAILY  TAKEN BY MOUTH
     Dates: start: 20160114
  4. SYNTHROID [Concomitant]
     Active Substance: LEVOTHYROXINE SODIUM

REACTIONS (2)
  - Dizziness [None]
  - Feeling drunk [None]

NARRATIVE: CASE EVENT DATE: 20160114
